FAERS Safety Report 24054269 (Version 4)
Quarter: 2024Q3

REPORT INFORMATION
  Report Type: Spontaneous
  Country: US (occurrence: US)
  Receive Date: 20240705
  Receipt Date: 20240910
  Transmission Date: 20241016
  Serious: Yes (Other)
  Sender: CHATTEM
  Company Number: US-OPELLA-2024OHG022581

PATIENT
  Age: 47 Year
  Sex: Female

DRUGS (1)
  1. DULCOLAX (BISACODYL) [Suspect]
     Active Substance: BISACODYL
     Indication: Product used for unknown indication
     Dosage: 1 PILL EVERY FEW MONTHS AS NEEDED
     Route: 065
     Dates: start: 20240627

REACTIONS (8)
  - Pseudostroke [Unknown]
  - Loss of consciousness [Unknown]
  - Concussion [Unknown]
  - Chills [Unknown]
  - Face injury [Unknown]
  - Tooth injury [Unknown]
  - Swelling [Not Recovered/Not Resolved]
  - Muscle spasms [Unknown]

NARRATIVE: CASE EVENT DATE: 20240628
